FAERS Safety Report 6306223-9 (Version None)
Quarter: 2009Q3

REPORT INFORMATION
  Report Type: 
  Country: None (occurrence: None)
  Receive Date: 20090812
  Receipt Date: 20090807
  Transmission Date: 20100115
  Serious: Yes (Hospitalization)
  Sender: FDA-Public Use
  Company Number: FI-ASTRAZENECA-2009SE07228

PATIENT
  Age: 19789 Day
  Sex: Male

DRUGS (3)
  1. ATACAND [Suspect]
     Indication: HYPERTENSION
     Route: 048
     Dates: start: 20090601, end: 20090718
  2. PRIMASPAN [Concomitant]
     Indication: EXTRACORPOREAL CIRCULATION
     Route: 048
     Dates: start: 20090710, end: 20090718
  3. CARDIOL [Concomitant]
     Indication: HYPERTENSION
     Route: 048
     Dates: start: 20090710, end: 20090718

REACTIONS (6)
  - ANGIOEDEMA [None]
  - DYSARTHRIA [None]
  - LARYNGEAL OEDEMA [None]
  - ORAL DISCHARGE [None]
  - PHARYNGEAL OEDEMA [None]
  - SWOLLEN TONGUE [None]
